FAERS Safety Report 8429248 (Version 3)
Quarter: 2013Q4

REPORT INFORMATION
  Report Type: Spontaneous
  Country: US (occurrence: US)
  Receive Date: 20120227
  Receipt Date: 20131003
  Transmission Date: 20140711
  Serious: Yes (Hospitalization, Congenital Anomaly, Other)
  Sender: FDA-Public Use
  Company Number: US-PFIZER INC-2011302117

PATIENT
  Sex: Male

DRUGS (5)
  1. ZOLOFT [Suspect]
     Indication: POSTPARTUM DEPRESSION
     Dosage: UNK
     Route: 064
     Dates: start: 200308, end: 200610
  2. ZOLOFT [Suspect]
     Dosage: 50 MG, 1X/DAY
     Route: 064
     Dates: start: 2007, end: 2007
  3. SERTRALINE HCL [Suspect]
     Dosage: UNK
     Route: 064
     Dates: start: 200705
  4. PRENATAL VITAMINS [Concomitant]
     Dosage: UNK
     Route: 064
  5. AMOXICILLIN [Concomitant]
     Dosage: UNK
     Route: 064

REACTIONS (20)
  - Maternal exposure timing unspecified [Unknown]
  - Coarctation of the aorta [Unknown]
  - Adrenal insufficiency [Unknown]
  - Bronchiolitis [Unknown]
  - Pharyngitis streptococcal [Unknown]
  - Congenital aortic stenosis [Unknown]
  - Neonatal tachypnoea [Unknown]
  - Neonatal respiratory distress syndrome [Unknown]
  - Left ventricular dysfunction [Unknown]
  - Patent ductus arteriosus [Unknown]
  - Aorta hypoplasia [Unknown]
  - Neonatal respiratory failure [Unknown]
  - Congenital aortic valve stenosis [Unknown]
  - Autism [Unknown]
  - Neonatal hypotension [Unknown]
  - Interstitial lung disease [Unknown]
  - Speech disorder [Unknown]
  - Atrial septal defect [Unknown]
  - Bicuspid aortic valve [Unknown]
  - Congenital anomaly [Unknown]
